FAERS Safety Report 7924234-4 (Version None)
Quarter: 2011Q4

REPORT INFORMATION
  Report Type: 
  Country: None (occurrence: None)
  Receive Date: 20111117
  Receipt Date: 20110321
  Transmission Date: 20120403
  Serious: No
  Sender: FDA-Public Use
  Company Number: US-AMGEN-USASP2011015513

PATIENT
  Age: 47 Year
  Sex: Female
  Weight: 77.098 kg

DRUGS (8)
  1. ENBREL [Suspect]
     Indication: PRODUCT USED FOR UNKNOWN INDICATION
     Dosage: 25 MG, 2 TIMES/WK
     Route: 058
     Dates: start: 19990101
  2. LOVASTATIN ACTAVIS [Concomitant]
     Dosage: 40 MG, UNK
  3. CENTRUM                            /00554501/ [Concomitant]
  4. PREDNISONE TAB [Concomitant]
     Dosage: 1 MG, UNK
  5. MIMVEY [Concomitant]
     Dosage: 1 MG, UNK
  6. FLAXSEED OIL [Concomitant]
  7. OMEPRAZOLE [Concomitant]
     Indication: PRODUCT USED FOR UNKNOWN INDICATION
     Dosage: 10 MG, UNK
  8. CALCIUM [Concomitant]
     Dosage: 1 UNK, UNK

REACTIONS (3)
  - NASAL CONGESTION [None]
  - INJECTION SITE ERYTHEMA [None]
  - INJECTION SITE HAEMATOMA [None]
